FAERS Safety Report 5366728-4 (Version None)
Quarter: 2007Q2

REPORT INFORMATION
  Report Type: 
  Country: None (occurrence: None)
  Receive Date: 20070622
  Receipt Date: 20060717
  Transmission Date: 20071010
  Serious: No
  Sender: FDA-Public Use
  Company Number: US-ASTRAZENECA-2006UW14684

PATIENT
  Age: 6 Year
  Sex: Female
  Weight: 22.7 kg

DRUGS (2)
  1. RHINOCORT [Suspect]
     Indication: ALLERGIC RESPIRATORY DISEASE
     Dosage: 1 SPRAY EACH NOSTRIL
     Route: 045
     Dates: start: 20040101
  2. SINGULAIR [Concomitant]

REACTIONS (3)
  - GROWTH RETARDATION [None]
  - INSOMNIA [None]
  - PHARYNGOLARYNGEAL PAIN [None]
